FAERS Safety Report 4741995-6 (Version None)
Quarter: 2005Q3

REPORT INFORMATION
  Report Type: 
  Country: None (occurrence: None)
  Receive Date: 20050804
  Receipt Date: 20050609
  Transmission Date: 20060218
  Serious: No
  Sender: FDA-Public Use
  Company Number: FACT0500458

PATIENT
  Age: 40 Year
  Sex: Female

DRUGS (5)
  1. FACTIVE [Suspect]
     Indication: RESPIRATORY TRACT INFECTION BACTERIAL
     Dosage: 320 MG, QD, ORAL
     Route: 048
     Dates: start: 20050419, end: 20050425
  2. PREDNISONE [Concomitant]
  3. SINGULAIR [Concomitant]
  4. FLONASE [Concomitant]
  5. ALBUTEROL [Concomitant]

REACTIONS (1)
  - RASH GENERALISED [None]
